FAERS Safety Report 9237880 (Version 1)
Quarter: 2013Q2

REPORT INFORMATION
  Report Type: Spontaneous
  Country: FR (occurrence: None)
  Receive Date: 20130415
  Receipt Date: 20130415
  Transmission Date: 20140414
  Serious: Yes (Hospitalization)
  Sender: FDA-Public Use
  Company Number: 2013-1262

PATIENT
  Age: 64 Year
  Sex: Male

DRUGS (6)
  1. DYSPORT (BOTULINUM TOXIN TYPE A) (BOTULINUM TOXIN TYPE A) [Suspect]
     Indication: MUSCLE SPASTICITY
     Dosage: 1500 UNITS, CYCLE(S), INTRAMUSCULAR
     Dates: start: 201204, end: 201212
  2. INVEXIUM (ESOMEPRAZOLE MAGNESIUM) [Concomitant]
  3. DAFALGAN (PARACETAMOL) [Concomitant]
  4. LEXOMIL (PARACETAMOL) [Concomitant]
  5. IMOVANE (ZOPICLONE) [Concomitant]
  6. ELETROL (ALL OTHER THERAPEUTIC PRODUCTS) [Concomitant]

REACTIONS (3)
  - Asthenia [None]
  - Gait disturbance [None]
  - Unevaluable event [None]
